FAERS Safety Report 8003202-0 (Version None)
Quarter: 2011Q4

REPORT INFORMATION
  Report Type: 
  Country: None (occurrence: None)
  Receive Date: 20111220
  Receipt Date: 20111205
  Transmission Date: 20120403
  Serious: Yes (Other)
  Sender: FDA-Public Use
  Company Number: 2010FR0043

PATIENT
  Age: 21 Year
  Sex: Male

DRUGS (3)
  1. VITAMIN D (VITAMIN D) (SOLUTION FOR INJECTION) [Concomitant]
  2. ORFADIN [Suspect]
     Indication: TYROSINAEMIA
     Dosage: 80 MG (40 MG, 2 IN 1 D)
     Route: 048
     Dates: start: 19970506
  3. VITAMIN K (VITAMIN K) (SOLUTION FOR INJECTION) [Concomitant]

REACTIONS (4)
  - HEPATIC NEOPLASM MALIGNANT [None]
  - COGNITIVE DISORDER [None]
  - TREATMENT NONCOMPLIANCE [None]
  - HAEMORRHAGE [None]
